FAERS Safety Report 21598379 (Version 2)
Quarter: 2022Q4

REPORT INFORMATION
  Report Type: Spontaneous
  Country: DE (occurrence: DE)
  Receive Date: 20221115
  Receipt Date: 20221229
  Transmission Date: 20230113
  Serious: Yes (Life-Threatening, Other)
  Sender: FDA-Public Use
  Company Number: DE-ALXN-A202213870

PATIENT
  Age: 19 Year
  Sex: Male
  Weight: 54 kg

DRUGS (5)
  1. ULTOMIRIS [Suspect]
     Active Substance: RAVULIZUMAB-CWVZ
     Indication: Atypical haemolytic uraemic syndrome
     Dosage: 3000 MG, Q56
     Route: 042
     Dates: start: 20210315, end: 202112
  2. CYCLOSPORINE [Concomitant]
     Active Substance: CYCLOSPORINE
     Indication: Product used for unknown indication
     Dosage: UNK
     Route: 065
  3. CIPROFLOXACIN [Concomitant]
     Active Substance: CIPROFLOXACIN
     Indication: Prophylaxis
     Dosage: 500 MG, QD
     Route: 065
  4. EVEROLIMUS [Concomitant]
     Active Substance: EVEROLIMUS
     Indication: Product used for unknown indication
     Dosage: UNK
     Route: 065
  5. PREDNISOLON                        /00016201/ [Concomitant]
     Indication: Product used for unknown indication
     Dosage: 5 MG, UNK
     Route: 065

REACTIONS (3)
  - Sepsis [Recovered/Resolved]
  - Meningitis meningococcal [Recovered/Resolved]
  - Multiple organ dysfunction syndrome [Recovered/Resolved]

NARRATIVE: CASE EVENT DATE: 20211231
